FAERS Safety Report 15085179 (Version 4)
Quarter: 2019Q3

REPORT INFORMATION
  Report Type: Report from Study
  Country: US (occurrence: US)
  Receive Date: 20180628
  Receipt Date: 20190717
  Transmission Date: 20191004
  Serious: Yes (Other)
  Sender: FDA-Public Use
  Company Number: US-GLAXOSMITHKLINE-US2018GSK113830

PATIENT
  Age: 66 Year
  Sex: Female

DRUGS (3)
  1. HUMIRA [Suspect]
     Active Substance: ADALIMUMAB
     Indication: CROHN^S DISEASE
     Dosage: 1 IN 2 WEEK
     Route: 058
     Dates: start: 20080819
  2. BUPROPION HYDROCHLORIDE. [Suspect]
     Active Substance: BUPROPION HYDROCHLORIDE
     Indication: PRODUCT USED FOR UNKNOWN INDICATION
     Dosage: UNK
     Route: 065
  3. HUMIRA [Suspect]
     Active Substance: ADALIMUMAB
     Indication: COLITIS ULCERATIVE

REACTIONS (52)
  - Sedation [Unknown]
  - Myalgia [Unknown]
  - Upper-airway cough syndrome [Unknown]
  - Blister [Unknown]
  - Drug ineffective [Unknown]
  - Intervertebral disc degeneration [Unknown]
  - Injection site papule [Not Recovered/Not Resolved]
  - Injection site erythema [Not Recovered/Not Resolved]
  - Injection site bruising [Not Recovered/Not Resolved]
  - Upper respiratory tract infection [Unknown]
  - Hypoaesthesia [Unknown]
  - Dysphemia [Unknown]
  - Injection site warmth [Not Recovered/Not Resolved]
  - Dermatitis contact [Unknown]
  - Carpal tunnel syndrome [Unknown]
  - Nerve block [Recovered/Resolved]
  - Obesity [Unknown]
  - Fatigue [Unknown]
  - Depression [Unknown]
  - Limb injury [Unknown]
  - Skin erosion [Unknown]
  - Nerve compression [Recovering/Resolving]
  - Dysarthria [Recovered/Resolved]
  - Hypoaesthesia [Recovered/Resolved]
  - Anger [Unknown]
  - Injection site pruritus [Not Recovered/Not Resolved]
  - Sleep apnoea syndrome [Unknown]
  - Amnesia [Unknown]
  - Discharge [Unknown]
  - Scar [Unknown]
  - Cholecystectomy [Unknown]
  - Gallbladder operation [Unknown]
  - Iron deficiency [Unknown]
  - Haemoglobin decreased [Unknown]
  - Frustration tolerance decreased [Unknown]
  - Injection site vesicles [Recovered/Resolved]
  - Influenza [Unknown]
  - Anaemia [Unknown]
  - Oedema peripheral [Unknown]
  - Asthenia [Unknown]
  - Adhesion [Not Recovered/Not Resolved]
  - Respiratory disorder [Unknown]
  - Back pain [Unknown]
  - Lymphoedema [Unknown]
  - Cataract [Recovering/Resolving]
  - Weight fluctuation [Unknown]
  - Contusion [Unknown]
  - Injection site mass [Unknown]
  - Eye pruritus [Unknown]
  - Back injury [Unknown]
  - Peripheral swelling [Unknown]
  - Injection site pain [Unknown]

NARRATIVE: CASE EVENT DATE: 2014
